FAERS Safety Report 6766134-1 (Version None)
Quarter: 2010Q2

REPORT INFORMATION
  Report Type: 
  Country: None (occurrence: None)
  Receive Date: 20100611
  Receipt Date: 20100603
  Transmission Date: 20101027
  Serious: Yes (Hospitalization)
  Sender: FDA-Public Use
  Company Number: US-SANOFI-AVENTIS-2010SA032583

PATIENT
  Age: 80 Year
  Sex: Male

DRUGS (18)
  1. TAXOTERE [Suspect]
     Indication: PROSTATE CANCER
     Route: 042
     Dates: start: 20070625
  2. TAXOTERE [Suspect]
     Dosage: REDUCED DOSE
     Route: 042
  3. INVESTIGATIONAL DRUG [Suspect]
     Indication: PROSTATE CANCER
     Route: 042
     Dates: start: 20070625, end: 20070625
  4. INVESTIGATIONAL DRUG [Suspect]
     Route: 042
  5. PREDNISONE [Suspect]
     Indication: PROSTATE CANCER
     Route: 048
     Dates: start: 20070625
  6. LUPRON [Concomitant]
     Dates: start: 20020901
  7. VASOTEC [Concomitant]
     Dates: start: 20050101
  8. ATENOLOL [Concomitant]
     Dates: start: 20060801
  9. LACTOBACILLUS ACIDOPHILUS [Concomitant]
  10. OS-CAL [Concomitant]
     Dates: start: 20070301
  11. NEXIUM /UNK/ [Concomitant]
  12. ZETIA [Concomitant]
     Dates: start: 20060101
  13. COLACE [Concomitant]
     Dates: start: 20070409
  14. SENOKOT /UNK/ [Concomitant]
     Dates: start: 20070409
  15. LOPERAMIDE HYDROCHLORIDE [Concomitant]
     Dates: start: 20070409
  16. CALCIUM CARBONATE [Concomitant]
     Dates: start: 20070314
  17. DECADRON [Concomitant]
     Dates: start: 20070314
  18. ZOMETA [Concomitant]
     Dates: start: 20070314

REACTIONS (3)
  - CHEST PAIN [None]
  - HYPONATRAEMIA [None]
  - NEUTROPENIA [None]
